FAERS Safety Report 20655719 (Version 3)
Quarter: 2025Q1

REPORT INFORMATION
  Report Type: Spontaneous
  Country: US (occurrence: US)
  Receive Date: 20220330
  Receipt Date: 20250222
  Transmission Date: 20250409
  Serious: No
  Sender: SANOFI AVENTIS
  Company Number: US-SA-SAC20220324001538

PATIENT
  Age: 52 Year
  Sex: Female

DRUGS (66)
  1. DUPIXENT [Suspect]
     Active Substance: DUPILUMAB
     Indication: Asthma
     Dosage: 300 MG, QOW
     Route: 058
     Dates: start: 20210423
  2. ALBUTEROL [Concomitant]
     Active Substance: ALBUTEROL
  3. AMMONIUM LACTATE [Concomitant]
     Active Substance: AMMONIUM LACTATE
  4. AMOXICILLIN\CLAVULANIC ACID [Concomitant]
     Active Substance: AMOXICILLIN\CLAVULANIC ACID
  5. AMOXICILLIN [Concomitant]
     Active Substance: AMOXICILLIN
  6. ATORVASTATIN [Concomitant]
     Active Substance: ATORVASTATIN
  7. AZELASTINE [Concomitant]
     Active Substance: AZELASTINE
  8. AZITHROMYCIN [Concomitant]
     Active Substance: AZITHROMYCIN
  9. BENZONATATE [Concomitant]
     Active Substance: BENZONATATE
  10. BUPROPION HYDROCHLORIDE [Concomitant]
     Active Substance: BUPROPION HYDROCHLORIDE
  11. BUDESONIDE\FORMOTEROL [Concomitant]
     Active Substance: BUDESONIDE\FORMOTEROL
  12. BUDESONIDE [Concomitant]
     Active Substance: BUDESONIDE
  13. BUPROPION HYDROCHLORIDE XL [Concomitant]
     Active Substance: BUPROPION HYDROCHLORIDE
  14. CLONAZEPAM [Concomitant]
     Active Substance: CLONAZEPAM
  15. CODEINE [Concomitant]
     Active Substance: CODEINE
  16. CEPHALEXIN MONOHYDRATE [Concomitant]
     Active Substance: CEPHALEXIN MONOHYDRATE
  17. CYANOCOBALAMIN [Concomitant]
     Active Substance: CYANOCOBALAMIN
  18. CYCLOBENZAPRINE [Concomitant]
     Active Substance: CYCLOBENZAPRINE
  19. DEPO-MEDROL [Concomitant]
     Active Substance: METHYLPREDNISOLONE ACETATE
  20. DEXAMETHASONE [Concomitant]
     Active Substance: DEXAMETHASONE
  21. AMFEPRAMONE [Concomitant]
     Active Substance: DIETHYLPROPION
  22. DICLOFENAC [Concomitant]
     Active Substance: DICLOFENAC
  23. DULOXETINE [Concomitant]
     Active Substance: DULOXETINE
  24. DOXYCYCLINE [Concomitant]
     Active Substance: DOXYCYCLINE
  25. ESTRADIOL [Concomitant]
     Active Substance: ESTRADIOL
  26. ESOMEPRA [ESOMEPRAZOLE MAGNESIUM] [Concomitant]
  27. FAMOTIDINE [Concomitant]
     Active Substance: FAMOTIDINE
  28. FLUCONAZOLE [Concomitant]
     Active Substance: FLUCONAZOLE
  29. FLUTICASONE [Concomitant]
     Active Substance: FLUTICASONE
  30. FLUZONE QUADRIVALENT NOS [Concomitant]
     Active Substance: INFLUENZA A VIRUS A/CALIFORNIA/7/2009 X-179A (H1N1) ANTIGEN (FORMALDEHYDE INACTIVATED)\INFLUENZA A V
  31. FOLIC ACID [Concomitant]
     Active Substance: FOLIC ACID
  32. GABAPENTIN [Concomitant]
     Active Substance: GABAPENTIN
  33. INCRUSE ELLIPTA [Concomitant]
     Active Substance: UMECLIDINIUM BROMIDE
  34. IPRATROPIUM [Concomitant]
     Active Substance: IPRATROPIUM
  35. KENALOG [Concomitant]
     Active Substance: TRIAMCINOLONE ACETONIDE
  36. KETOCONAZOLE [Concomitant]
     Active Substance: KETOCONAZOLE
  37. KETOROLAC [Concomitant]
     Active Substance: KETOROLAC TROMETHAMINE
  38. LAMOTRIGINE [Concomitant]
     Active Substance: LAMOTRIGINE
  39. LYRICA [Concomitant]
     Active Substance: PREGABALIN
  40. LEFLUNOMIDE [Concomitant]
     Active Substance: LEFLUNOMIDE
  41. LEVOFLOXACIN [Concomitant]
     Active Substance: LEVOFLOXACIN
  42. LIDOCAINE [Concomitant]
     Active Substance: LIDOCAINE
  43. LOSARTAN POTASSIUM [Concomitant]
     Active Substance: LOSARTAN POTASSIUM
  44. METHOCARBAMOL [Concomitant]
     Active Substance: METHOCARBAMOL
  45. MONTELUKAST [Concomitant]
     Active Substance: MONTELUKAST
  46. MUCINEX [Concomitant]
     Active Substance: GUAIFENESIN
  47. METHOTREXATE [Concomitant]
     Active Substance: METHOTREXATE
  48. MODERNA COVID-19 VACCINE [Concomitant]
     Active Substance: ELASOMERAN
  49. METHYLPREDNISOLONE [Concomitant]
     Active Substance: METHYLPREDNISOLONE
  50. ONDANSETRON [Concomitant]
     Active Substance: ONDANSETRON
  51. ORENCIA [Concomitant]
     Active Substance: ABATACEPT
  52. PREDNISONE [Concomitant]
     Active Substance: PREDNISONE
  53. PHENTERMINE [Concomitant]
     Active Substance: PHENTERMINE
  54. PREGABALIN [Concomitant]
     Active Substance: PREGABALIN
  55. PROAIR HFA [Concomitant]
     Active Substance: ALBUTEROL SULFATE
  56. ROPINIROLE [Concomitant]
     Active Substance: ROPINIROLE
  57. SERTRALINE [Concomitant]
     Active Substance: SERTRALINE HYDROCHLORIDE
  58. SPIRIVA [Concomitant]
     Active Substance: TIOTROPIUM BROMIDE MONOHYDRATE
  59. SYMBICORT [Concomitant]
     Active Substance: BUDESONIDE\FORMOTEROL FUMARATE DIHYDRATE
  60. TRAMADOL [Concomitant]
     Active Substance: TRAMADOL
  61. TRAZODONE [Concomitant]
     Active Substance: TRAZODONE HYDROCHLORIDE
  62. TRETINOIN [Concomitant]
     Active Substance: TRETINOIN
  63. TRIAMCINOLON [TRIAMCINOLONE ACETONIDE] [Concomitant]
  64. WELLBUTRIN XL [Concomitant]
     Active Substance: BUPROPION HYDROCHLORIDE
  65. WIXELA INHUB [Concomitant]
     Active Substance: FLUTICASONE PROPIONATE\SALMETEROL XINAFOATE
  66. ZOLOFT [Concomitant]
     Active Substance: SERTRALINE HYDROCHLORIDE

REACTIONS (3)
  - Pain [Unknown]
  - Impaired quality of life [Not Recovered/Not Resolved]
  - Asthma [Not Recovered/Not Resolved]
